FAERS Safety Report 6137093-X (Version None)
Quarter: 2009Q1

REPORT INFORMATION
  Report Type: 
  Country: None (occurrence: None)
  Receive Date: 20090330
  Receipt Date: 20090316
  Transmission Date: 20090719
  Serious: Yes (Hospitalization)
  Sender: FDA-Public Use
  Company Number: FR-ROCHE-473575

PATIENT
  Sex: Male

DRUGS (7)
  1. PEG-INTERFERON A-2A (RO 25-8310) [Suspect]
     Route: 065
     Dates: start: 20060420
  2. TRUVADA [Concomitant]
     Dosage: DECREASED TO ONE TABLET EVERY TWO DAYS
  3. INDINIVIR SULFATE [Concomitant]
  4. RITONAVIR [Concomitant]
  5. BACTRIM [Concomitant]
  6. PARACETAMOL [Concomitant]
  7. IMOVANE [Concomitant]

REACTIONS (3)
  - ABDOMINAL PAIN [None]
  - ASCITES [None]
  - RENAL FAILURE [None]
